FAERS Safety Report 23554805 (Version 1)
Quarter: 2024Q1

REPORT INFORMATION
  Report Type: Spontaneous
  Country: US (occurrence: None)
  Receive Date: 20240222
  Receipt Date: 20240222
  Transmission Date: 20240409
  Serious: Yes (Hospitalization, Other)
  Sender: FDA-Public Use
  Company Number: None

PATIENT
  Age: 90 Year
  Sex: Female
  Weight: 92.25 kg

DRUGS (18)
  1. NIRMATRELVIR\RITONAVIR [Suspect]
     Active Substance: NIRMATRELVIR\RITONAVIR
     Indication: COVID-19
     Dosage: 300-100 MG TWICE A DAY ORAL?
     Route: 048
     Dates: start: 20240218, end: 20240220
  2. aspirin 81 mg PO QD [Concomitant]
  3. amlodipine 2.5 mg PO QD [Concomitant]
  4. Basaglar 15 units QD [Concomitant]
  5. furosemide 40 mg PO QD [Concomitant]
  6. Gabapentin 600 mg PO HS [Concomitant]
  7. Hydrocodone 5mg/325 mg - 2 tab QAM and 1 tab QPM [Concomitant]
  8. Metformin 500 mg IR - 2 tab PO QAM, 1 tab PO QPM [Concomitant]
  9. VITAMINS [Concomitant]
     Active Substance: VITAMINS
  10. Omeprazole 20 mg PO QD [Concomitant]
  11. simvastatin 10 mg PO QD [Concomitant]
  12. trazodone 50 mg - 25 mg PO QHS [Concomitant]
  13. Vitamin D3 2000 IU PO QD [Concomitant]
  14. Buspirone 10 mg PO BID [Concomitant]
  15. Carvedilol 12.5 mg PO BID [Concomitant]
  16. Alprazolam 0.75 mg PO TID [Concomitant]
  17. Simethicone PO TID [Concomitant]
  18. ACETAMINOPHEN [Concomitant]
     Active Substance: ACETAMINOPHEN

REACTIONS (2)
  - Electrocardiogram QT prolonged [None]
  - Blood magnesium abnormal [None]

NARRATIVE: CASE EVENT DATE: 20240221
